APPROVED DRUG PRODUCT: PRIMIDONE
Active Ingredient: PRIMIDONE
Strength: 50MG
Dosage Form/Route: TABLET;ORAL
Application: A218366 | Product #001 | TE Code: AB
Applicant: PHARMOBEDIENT CONSULTING LLC
Approved: Jan 23, 2024 | RLD: No | RS: No | Type: RX